FAERS Safety Report 11669878 (Version 1)
Quarter: 2015Q4

REPORT INFORMATION
  Report Type: Spontaneous
  Country: US (occurrence: US)
  Receive Date: 20151027
  Receipt Date: 20151027
  Transmission Date: 20160304
  Serious: No
  Sender: FDA-Public Use
  Company Number: US-ELI_LILLY_AND_COMPANY-US201004006269

PATIENT
  Sex: Female

DRUGS (2)
  1. FORTEO [Suspect]
     Active Substance: TERIPARATIDE
     Indication: OSTEOPOROSIS
     Dosage: 20 UG, DAILY (1/D)
     Route: 065
     Dates: start: 201002, end: 201004
  2. ACTOS [Concomitant]
     Active Substance: PIOGLITAZONE HYDROCHLORIDE
     Indication: GLUCOSE TOLERANCE IMPAIRED

REACTIONS (9)
  - Alopecia [Unknown]
  - Diarrhoea [Not Recovered/Not Resolved]
  - Hair texture abnormal [Unknown]
  - Abdominal pain upper [Unknown]
  - Blood glucose increased [Unknown]
  - Dry mouth [Unknown]
  - Social fear [Unknown]
  - Vision blurred [Unknown]
  - Feeling abnormal [Unknown]

NARRATIVE: CASE EVENT DATE: 2010
